FAERS Safety Report 20578021 (Version 1)
Quarter: 2022Q1

REPORT INFORMATION
  Report Type: Spontaneous
  Country: US (occurrence: None)
  Receive Date: 20220310
  Receipt Date: 20220310
  Transmission Date: 20220423
  Serious: Yes (unspecified)
  Sender: FDA-Public Use
  Company Number: None

PATIENT
  Age: 68 Year
  Sex: Male
  Weight: 103.87 kg

DRUGS (1)
  1. METHADONE HYDROCHLORIDE [Suspect]
     Active Substance: METHADONE HYDROCHLORIDE
     Indication: Pain
     Dosage: OTHER QUANTITY : 5 VS. 50 MG;?FREQUENCY : ONCE;?
     Route: 042
     Dates: start: 20211224, end: 20211224

REACTIONS (5)
  - Respiratory arrest [None]
  - Injection related reaction [None]
  - Mental status changes [None]
  - Accidental overdose [None]
  - Incorrect dose administered [None]

NARRATIVE: CASE EVENT DATE: 20211224
